FAERS Safety Report 20662075 (Version 1)
Quarter: 2022Q2

REPORT INFORMATION
  Report Type: Spontaneous
  Country: US (occurrence: US)
  Receive Date: 20220401
  Receipt Date: 20220401
  Transmission Date: 20220721
  Serious: Yes (Life-Threatening, Other)
  Sender: FDA-Public Use
  Company Number: US-Adare-2022-US-000018

PATIENT
  Age: 50 Year
  Sex: Male

DRUGS (2)
  1. METHIMAZOLE [Concomitant]
     Active Substance: METHIMAZOLE
     Indication: Hyperthyroidism
  2. PROPRANOLOL [Suspect]
     Active Substance: PROPRANOLOL HYDROCHLORIDE
     Indication: Hyperthyroidism

REACTIONS (4)
  - Product use in unapproved indication [Not Recovered/Not Resolved]
  - Cardiac arrest [Unknown]
  - Cardiogenic shock [Unknown]
  - Pulseless electrical activity [Unknown]
